FAERS Safety Report 14155813 (Version 1)
Quarter: 2017Q4

REPORT INFORMATION
  Report Type: Spontaneous
  Country: US (occurrence: US)
  Receive Date: 20171103
  Receipt Date: 20171103
  Transmission Date: 20180321
  Serious: No
  Sender: FDA-Public Use
  Company Number: US-TEVA-819838USA

PATIENT
  Age: 77 Year
  Sex: Male
  Weight: 45.4 kg

DRUGS (13)
  1. TRAMADOL. [Concomitant]
     Active Substance: TRAMADOL
  2. BABY ASPIRIN [Concomitant]
     Active Substance: ASPIRIN
  3. PROAIR HFA [Suspect]
     Active Substance: ALBUTEROL SULFATE
     Route: 065
  4. PANTOPRAZOLE [Concomitant]
     Active Substance: PANTOPRAZOLE
  5. LOVASTATIN. [Concomitant]
     Active Substance: LOVASTATIN
  6. VITAMIN D [Concomitant]
     Active Substance: CHOLECALCIFEROL
  7. LACTULOSE. [Concomitant]
     Active Substance: LACTULOSE
  8. MAGNESIUM [Concomitant]
     Active Substance: MAGNESIUM
  9. SPIRIVA [Concomitant]
     Active Substance: TIOTROPIUM BROMIDE MONOHYDRATE
  10. CALCITRIOL. [Concomitant]
     Active Substance: CALCITRIOL
  11. LANTUS [Concomitant]
     Active Substance: INSULIN GLARGINE
  12. SYNRIBO [Suspect]
     Active Substance: OMACETAXINE MEPESUCCINATE
     Indication: CHRONIC MYELOID LEUKAEMIA
     Dosage: 5.2 MILLIGRAM DAILY;
     Route: 058
     Dates: start: 20171018
  13. IRON [Concomitant]
     Active Substance: IRON

REACTIONS (4)
  - Headache [Unknown]
  - Dizziness [Unknown]
  - Drug dose omission [Unknown]
  - Asthenia [Unknown]

NARRATIVE: CASE EVENT DATE: 20171020
